FAERS Safety Report 4714411-8 (Version None)
Quarter: 2005Q3

REPORT INFORMATION
  Report Type: 
  Country: None (occurrence: None)
  Receive Date: 20050714
  Receipt Date: 20050706
  Transmission Date: 20060218
  Serious: Yes (Hospitalization)
  Sender: FDA-Public Use
  Company Number: SE-GLAXOSMITHKLINE-B0387562A

PATIENT
  Age: 64 Year
  Sex: Male

DRUGS (7)
  1. ZOVIRAX [Suspect]
     Indication: HERPES ZOSTER
     Dosage: 800MG FIVE TIMES PER DAY
     Route: 048
     Dates: start: 19990414, end: 19990418
  2. OMEPRAZOLE [Concomitant]
  3. EPREX [Concomitant]
  4. RESONIUM [Concomitant]
  5. ENALAPRIL MALEATE [Concomitant]
  6. KALCITENA [Concomitant]
  7. ATENOLOL [Concomitant]

REACTIONS (8)
  - DISORIENTATION [None]
  - DIZZINESS [None]
  - DRUG TOXICITY [None]
  - HAEMODIALYSIS [None]
  - MUSCLE SPASMS [None]
  - MUSCLE TWITCHING [None]
  - SOMNOLENCE [None]
  - SYNCOPE [None]
